FAERS Safety Report 18457559 (Version 1)
Quarter: 2020Q4

REPORT INFORMATION
  Report Type: Spontaneous
  Country: US (occurrence: US)
  Receive Date: 20201030
  Receipt Date: 20201030
  Transmission Date: 20210114
  Serious: Yes (Other)
  Sender: FDA-Public Use
  Company Number: US-009507513-2010USA008219

PATIENT
  Age: 67 Year
  Sex: Male
  Weight: 79.83 kg

DRUGS (8)
  1. ONGENTYS [Suspect]
     Active Substance: OPICAPONE
     Dosage: UNK
  2. COZAAR [Concomitant]
     Active Substance: LOSARTAN POTASSIUM
     Indication: HYPERTENSION
     Dosage: 50 MILLIGRAM, QD
     Dates: start: 2012
  3. SINEMET [Suspect]
     Active Substance: CARBIDOPA\LEVODOPA
     Indication: PARKINSON^S DISEASE
     Dosage: 3 DOSAGE FORM, QD BEFORE MEALS
     Route: 048
     Dates: start: 201707
  4. SINEMET [Suspect]
     Active Substance: CARBIDOPA\LEVODOPA
     Dosage: 1 DOSAGE FORM, QD
     Route: 048
     Dates: start: 202010
  5. ROSUVASTATIN. [Concomitant]
     Active Substance: ROSUVASTATIN
     Indication: BLOOD CHOLESTEROL
     Dosage: 20 MILLIGRAM, QD
     Dates: start: 202006
  6. TAMSULOSIN HYDROCHLORIDE. [Concomitant]
     Active Substance: TAMSULOSIN HYDROCHLORIDE
     Indication: LIMB DISCOMFORT
     Dosage: UNK
     Dates: start: 201708
  7. SINEMET [Suspect]
     Active Substance: CARBIDOPA\LEVODOPA
     Indication: PARKINSON^S DISEASE
     Dosage: 3 DOSAGE FORM, QD
     Route: 048
     Dates: start: 20201002, end: 20201007
  8. SINEMET [Suspect]
     Active Substance: CARBIDOPA\LEVODOPA
     Dosage: 1 DOSAGE FORM, QD
     Route: 048
     Dates: start: 202010

REACTIONS (6)
  - Drug intolerance [Unknown]
  - Hangover [Recovering/Resolving]
  - Hot flush [Unknown]
  - Parkinson^s disease [Not Recovered/Not Resolved]
  - Vision blurred [Unknown]
  - Remission not achieved [Unknown]

NARRATIVE: CASE EVENT DATE: 202010
